FAERS Safety Report 14825203 (Version 3)
Quarter: 2023Q1

REPORT INFORMATION
  Report Type: Spontaneous
  Country: US (occurrence: US)
  Receive Date: 20180430
  Receipt Date: 20230104
  Transmission Date: 20230418
  Serious: Yes (Other)
  Sender: FDA-Public Use
  Company Number: US-JNJFOC-20161009058

PATIENT
  Age: 11 Year
  Sex: Male

DRUGS (5)
  1. RISPERDAL [Suspect]
     Active Substance: RISPERIDONE
     Indication: Affective disorder
     Dosage: VARYING DOSE OF 0.5 MG AND 1 MG
     Route: 048
     Dates: start: 20080218, end: 20080805
  2. RISPERDAL [Suspect]
     Active Substance: RISPERIDONE
     Indication: Anger
  3. RISPERDAL [Suspect]
     Active Substance: RISPERIDONE
     Indication: Behaviour disorder
  4. RISPERIDONE [Suspect]
     Active Substance: RISPERIDONE
     Indication: Affective disorder
     Route: 048
     Dates: start: 20080218
  5. RISPERIDONE [Suspect]
     Active Substance: RISPERIDONE
     Dosage: VARYING DOSE OF 0.5 MG AND 1 MG
     Route: 048
     Dates: end: 20080805

REACTIONS (5)
  - Overweight [Not Recovered/Not Resolved]
  - Gynaecomastia [Recovering/Resolving]
  - Emotional distress [Unknown]
  - Somnolence [Recovered/Resolved]
  - Off label use [Unknown]

NARRATIVE: CASE EVENT DATE: 20080218
